FAERS Safety Report 4372657-5 (Version None)
Quarter: 2004Q2

REPORT INFORMATION
  Report Type: 
  Country: None (occurrence: None)
  Receive Date: 20040526
  Receipt Date: 20040521
  Transmission Date: 20050107
  Serious: Yes (Hospitalization)
  Sender: FDA-Public Use
  Company Number: US-JNJFOC-20040504699

PATIENT
  Age: 10 Year
  Sex: Female
  Weight: 52.6173 kg

DRUGS (2)
  1. CONCERTA [Suspect]
     Dosage: ORAL
     Route: 048
  2. NEO-SYNEPHRINE (PHENYLEPHRINE HYDROCHLORIDE) [Suspect]
     Dosage: NASAL
     Route: 045

REACTIONS (2)
  - HYPERTENSION [None]
  - PULMONARY OEDEMA [None]
